FAERS Safety Report 18553906 (Version 1)
Quarter: 2020Q4

REPORT INFORMATION
  Report Type: Spontaneous
  Country: US (occurrence: US)
  Receive Date: 20201127
  Receipt Date: 20201127
  Transmission Date: 20210114
  Serious: Yes (Other)
  Sender: FDA-Public Use
  Company Number: US-009507513-2011USA013977

PATIENT
  Age: 58 Year
  Sex: Male

DRUGS (11)
  1. NOVOLIN R [Concomitant]
     Active Substance: INSULIN HUMAN
     Dosage: 100 UNIT/ML, INJECT 10 UNIT
     Route: 058
  2. CITALOPRAM [Concomitant]
     Active Substance: CITALOPRAM HYDROBROMIDE
     Dosage: 10 MILLIGRAM, QD
     Route: 048
  3. LAMICTAL [Concomitant]
     Active Substance: LAMOTRIGINE
     Dosage: 10 MILLIGRAM, QD
     Route: 048
  4. LANTUS [Concomitant]
     Active Substance: INSULIN GLARGINE
     Dosage: 100 UNIT/ML, INJECT 18 UNIT 1 TIME PER DAY
     Route: 058
  5. ASPIRIN. [Concomitant]
     Active Substance: ASPIRIN
     Dosage: 81 MILLIGRAM, QD
     Route: 048
  6. NEXIUM [Suspect]
     Active Substance: ESOMEPRAZOLE MAGNESIUM
     Dosage: 40 MILLIGRAM, QD
     Route: 048
  7. CELEBREX [Concomitant]
     Active Substance: CELECOXIB
     Dosage: 1 CAPSULE BY ORAL 1 TIMES PER DAY PRN
     Route: 048
  8. ATENOLOL. [Suspect]
     Active Substance: ATENOLOL
     Dosage: 50 MILLIGRAM, QD
     Route: 048
  9. JANUMET [Concomitant]
     Active Substance: METFORMIN HYDROCHLORIDE\SITAGLIPTIN PHOSPHATE
     Dosage: 50-50 MG, TWO TIMES A DAY
     Route: 048
  10. PRINIVIL [Suspect]
     Active Substance: LISINOPRIL
     Dosage: 40 MILLIGRAM, QD
     Route: 048
  11. PROAIR HFA [Concomitant]
     Active Substance: ALBUTEROL SULFATE
     Dosage: 90 MCG, 2 PUFFS, EVERY 4 TO 6 HOURS
     Route: 055

REACTIONS (10)
  - Cerebral artery occlusion [Unknown]
  - Cerebral infarction [Unknown]
  - Hyponatraemia [Unknown]
  - Impaired gastric emptying [Unknown]
  - Cerebellar ataxia [Unknown]
  - Subarachnoid haemorrhage [Unknown]
  - Mental status changes [Unknown]
  - Dizziness [Unknown]
  - Alcohol abuse [Unknown]
  - Major depression [Unknown]

NARRATIVE: CASE EVENT DATE: 20110907
